FAERS Safety Report 13586760 (Version 2)
Quarter: 2017Q2

REPORT INFORMATION
  Report Type: Spontaneous
  Country: US (occurrence: US)
  Receive Date: 20170526
  Receipt Date: 20170606
  Transmission Date: 20170830
  Serious: No
  Sender: FDA-Public Use
  Company Number: US-ASTRAZENECA-2017SE52690

PATIENT
  Age: 21048 Day
  Sex: Female
  Weight: 52.2 kg

DRUGS (6)
  1. SYMBICORT [Suspect]
     Active Substance: BUDESONIDE\FORMOTEROL FUMARATE DIHYDRATE
     Indication: CHRONIC OBSTRUCTIVE PULMONARY DISEASE
     Dosage: 160/4.5, TWO PUFFS, TWICE DAILY
     Route: 055
  2. TUDORZA PRESSAIR [Suspect]
     Active Substance: ACLIDINIUM BROMIDE
     Indication: CHRONIC OBSTRUCTIVE PULMONARY DISEASE
     Route: 055
     Dates: start: 201410
  3. VITAMINS NOS [Concomitant]
     Active Substance: VITAMINS
  4. CEFTINE [Concomitant]
     Dates: start: 20170407, end: 20170417
  5. TUDORZA PRESSAIR [Suspect]
     Active Substance: ACLIDINIUM BROMIDE
     Indication: CHRONIC OBSTRUCTIVE PULMONARY DISEASE
     Dosage: 1 PUFF TWICE DAILY BUT TOOK ONLY ONE PUFF A DAY
     Route: 055
     Dates: start: 201704, end: 20170510
  6. MEDROL [Concomitant]
     Active Substance: METHYLPREDNISOLONE
     Dates: start: 20170502, end: 20170508

REACTIONS (11)
  - Insomnia [Unknown]
  - Drug ineffective [Unknown]
  - Nervousness [Unknown]
  - Energy increased [Unknown]
  - Vision blurred [Unknown]
  - Dysphonia [Unknown]
  - Intentional product misuse [Unknown]
  - Dizziness [Unknown]
  - Exposure to toxic agent [Unknown]
  - Throat irritation [Unknown]
  - Chronic obstructive pulmonary disease [Unknown]

NARRATIVE: CASE EVENT DATE: 20170311
